FAERS Safety Report 19421055 (Version 1)
Quarter: 2021Q2

REPORT INFORMATION
  Report Type: Spontaneous
  Country: NL (occurrence: NL)
  Receive Date: 20210616
  Receipt Date: 20210616
  Transmission Date: 20210717
  Serious: Yes (Other)
  Sender: FDA-Public Use
  Company Number: NL-SUN PHARMACEUTICAL INDUSTRIES LTD-2021RR-300396

PATIENT
  Age: 50 Year
  Sex: Male
  Weight: 84 kg

DRUGS (6)
  1. CARBASALAATCALCIUM POEDER 100MG / ASCAL CARDIO SACHET 100MGASCAL CA... [Concomitant]
     Indication: PRODUCT USED FOR UNKNOWN INDICATION
     Dosage: ()
     Route: 065
  2. METOPROLOL TABLET   50MG / BRAND NAME NOT SPECIFIEDMETOPROLOL TABLE... [Concomitant]
     Indication: PRODUCT USED FOR UNKNOWN INDICATION
     Dosage: TABLET, 50 MG (MILLIGRAM) ()
     Route: 065
  3. PANTOPRAZOL TABLET MSR 20MG / MAAGZUURTABLET PANTOPRAZOL HTP TABLET... [Concomitant]
     Indication: PRODUCT USED FOR UNKNOWN INDICATION
     Dosage: 40 MILLIGRAM, UNK
     Route: 065
  4. EZETIMIB TABLET 10MG / BRAND NAME NOT SPECIFIEDEZETIMIB TABLET 10MG [Concomitant]
     Indication: PRODUCT USED FOR UNKNOWN INDICATION
     Dosage: TABLET, 10 MG (MILLIGRAM) ()
     Route: 065
  5. ATORVASTATIN [Suspect]
     Active Substance: ATORVASTATIN
     Indication: HYPERCHOLESTEROLAEMIA
     Dosage: 1 DOSAGE FORM, TABLET, 40 MG (MILLIGRAM),
     Route: 065
     Dates: start: 20160316, end: 20201127
  6. PERINDOPRIL TABLET 2MG (ERBUMINE) / BRAND NAME NOT SPECIFIEDPERINDO... [Concomitant]
     Indication: PRODUCT USED FOR UNKNOWN INDICATION
     Dosage: 2MG ()
     Route: 065

REACTIONS (3)
  - Polymyositis [Recovering/Resolving]
  - Hepatic enzyme increased [Recovering/Resolving]
  - Rhabdomyolysis [Recovering/Resolving]

NARRATIVE: CASE EVENT DATE: 20200301
